FAERS Safety Report 23875511 (Version 2)
Quarter: 2024Q2

REPORT INFORMATION
  Report Type: Spontaneous
  Country: US (occurrence: US)
  Receive Date: 20240520
  Receipt Date: 20240605
  Transmission Date: 20240716
  Serious: No
  Sender: FDA-Public Use
  Company Number: US-TEVA-VS-3193604

PATIENT
  Age: 61 Year
  Sex: Female
  Weight: 72.57 kg

DRUGS (2)
  1. ALBUTEROL SULFATE [Suspect]
     Active Substance: ALBUTEROL SULFATE
     Indication: Asthma
     Dosage: TAKE 1-2 PUFFS TWICE A DAY AS NEEDED
     Route: 065
  2. MEDROL [Concomitant]
     Active Substance: METHYLPREDNISOLONE

REACTIONS (3)
  - Device malfunction [Unknown]
  - Emergency care [Unknown]
  - Hypersensitivity [Unknown]
